FAERS Safety Report 25496496 (Version 3)
Quarter: 2025Q3

REPORT INFORMATION
  Report Type: Spontaneous
  Country: US (occurrence: US)
  Receive Date: 20250630
  Receipt Date: 20250825
  Transmission Date: 20251020
  Serious: Yes (Other)
  Sender: ENDO
  Company Number: US-ENDO USA, INC.-2025-001487

PATIENT
  Sex: Male

DRUGS (1)
  1. XIAFLEX [Suspect]
     Active Substance: COLLAGENASE CLOSTRIDIUM HISTOLYTICUM
     Indication: Dupuytren^s contracture
     Route: 051
     Dates: start: 20201015

REACTIONS (3)
  - Finger amputation [Recovered/Resolved]
  - Joint dislocation [Recovered/Resolved]
  - Wrong technique in product usage process [Recovered/Resolved with Sequelae]

NARRATIVE: CASE EVENT DATE: 20201016
